FAERS Safety Report 15209658 (Version 1)
Quarter: 2018Q3

REPORT INFORMATION
  Report Type: Spontaneous
  Country: US (occurrence: US)
  Receive Date: 20180629
  Receipt Date: 20180629
  Transmission Date: 20181010
  Serious: Yes (Hospitalization)
  Sender: FDA-Public Use
  Company Number: None

PATIENT
  Age: 43 Year
  Sex: Male

DRUGS (14)
  1. SOMAVERT [Suspect]
     Active Substance: PEGVISOMANT
     Indication: GIGANTISM
     Route: 058
     Dates: start: 20150121
  2. SOMAVERT [Suspect]
     Active Substance: PEGVISOMANT
     Indication: ACROMEGALY
     Route: 058
     Dates: start: 20150121
  3. SOMAVERT [Suspect]
     Active Substance: PEGVISOMANT
     Indication: GIGANTISM
     Route: 058
     Dates: start: 20150121
  4. METFORMIN [Concomitant]
     Active Substance: METFORMIN HYDROCHLORIDE
  5. ANDROGEL [Concomitant]
     Active Substance: TESTOSTERONE
  6. ASTEPRO [Concomitant]
     Active Substance: AZELASTINE HYDROCHLORIDE
  7. LANTUS [Concomitant]
     Active Substance: INSULIN GLARGINE
  8. RESTASIS [Concomitant]
     Active Substance: CYCLOSPORINE
  9. NAPROXEN. [Concomitant]
     Active Substance: NAPROXEN
  10. PREDNISONE. [Concomitant]
     Active Substance: PREDNISONE
  11. SOMATULINE [Concomitant]
     Active Substance: LANREOTIDE ACETATE
  12. SOMAVERT [Suspect]
     Active Substance: PEGVISOMANT
     Indication: ACROMEGALY
     Route: 058
     Dates: start: 20150121
  13. FLUTICASONE. [Concomitant]
     Active Substance: FLUTICASONE
  14. LOSARTAN. [Concomitant]
     Active Substance: LOSARTAN

REACTIONS (2)
  - Drug dose omission [None]
  - Thyroidectomy [None]

NARRATIVE: CASE EVENT DATE: 20180628
